FAERS Safety Report 6830823-0 (Version None)
Quarter: 2010Q3

REPORT INFORMATION
  Report Type: 
  Country: None (occurrence: None)
  Receive Date: 20100712
  Receipt Date: 20100701
  Transmission Date: 20110219
  Serious: Yes (Death)
  Sender: FDA-Public Use
  Company Number: US-JNJFOC-20090606686

PATIENT
  Sex: Female
  Weight: 126.1 kg

DRUGS (2)
  1. REMICADE [Suspect]
     Indication: PSORIASIS
     Dosage: FIRST DOSE
     Route: 042
  2. UNKNOWN MEDICATION [Concomitant]
     Indication: PSORIASIS
     Route: 061

REACTIONS (2)
  - CARDIAC DISORDER [None]
  - INFLUENZA [None]
